FAERS Safety Report 14984555 (Version 1)
Quarter: 2018Q2

REPORT INFORMATION
  Report Type: Spontaneous
  Country: FI (occurrence: FI)
  Receive Date: 20180607
  Receipt Date: 20180607
  Transmission Date: 20180711
  Serious: Yes (Death, Hospitalization, Other)
  Sender: FDA-Public Use
  Company Number: FI-DSJP-DSE-2018-121706

PATIENT

DRUGS (5)
  1. LIXIANA [Suspect]
     Active Substance: EDOXABAN TOSYLATE
     Indication: ATRIAL FIBRILLATION
     Dosage: 30 MG, UNK
     Route: 048
     Dates: start: 20180211
  2. CLOPIDOGREL [Concomitant]
     Active Substance: CLOPIDOGREL BISULFATE
     Indication: PRODUCT USED FOR UNKNOWN INDICATION
     Dosage: UNK
     Dates: start: 2017
  3. LOSARTAN POTASSIUM/HYDROCHLOROTHIAZIDE [Suspect]
     Active Substance: HYDROCHLOROTHIAZIDE\LOSARTAN POTASSIUM
     Indication: HYPERTENSION
     Dosage: UNK
     Route: 048
  4. LOSARTAN POTASSIUM/HYDROCHLOROTHIAZIDE [Suspect]
     Active Substance: HYDROCHLOROTHIAZIDE\LOSARTAN POTASSIUM
     Dosage: DECREASED ()
     Route: 048
     Dates: start: 201802
  5. BISOPROLOL [Concomitant]
     Active Substance: BISOPROLOL
     Indication: HYPERTENSION
     Dosage: 5 MG, QD

REACTIONS (16)
  - Hypoacusis [Unknown]
  - Subdural haematoma [Unknown]
  - Visual impairment [Unknown]
  - Blood pressure decreased [Unknown]
  - Decreased appetite [Unknown]
  - General physical health deterioration [Unknown]
  - Cerebrospinal fluid leakage [Unknown]
  - Transient ischaemic attack [Unknown]
  - Confusional state [Unknown]
  - Nausea [Unknown]
  - Depressed level of consciousness [Unknown]
  - Atrial fibrillation [Unknown]
  - Fall [Unknown]
  - Fatigue [Unknown]
  - Death [Fatal]
  - Subdural effusion [Unknown]

NARRATIVE: CASE EVENT DATE: 2012
